FAERS Safety Report 8984682 (Version 2)
Quarter: 2013Q2

REPORT INFORMATION
  Report Type: Spontaneous
  Country: US (occurrence: US)
  Receive Date: 20121226
  Receipt Date: 20130613
  Transmission Date: 20140414
  Serious: Yes (Life-Threatening, Hospitalization, Other)
  Sender: FDA-Public Use
  Company Number: US-BAYER-2012-132930

PATIENT
  Age: 19 Year
  Sex: Female
  Weight: 108.84 kg

DRUGS (12)
  1. SAFYRAL [Suspect]
     Indication: POLYCYSTIC OVARIES
     Dosage: UNK
     Dates: start: 20120127, end: 20120517
  2. YASMIN [Suspect]
     Indication: POLYCYSTIC OVARIES
     Dosage: UNK
     Dates: start: 20120127, end: 20120517
  3. FLUTICASONE [Concomitant]
     Dosage: UNK UNK, PRN
     Dates: start: 20120503
  4. CALCIUM [Concomitant]
     Dosage: UNK
     Dates: start: 20120509
  5. SYNTHROID [Concomitant]
     Dosage: UNK
     Dates: start: 20120509
  6. MINOCYCLINE [Concomitant]
  7. CIPRO [Concomitant]
  8. MORPHINE [Concomitant]
     Indication: PAIN
  9. TYLENOL #3 [Concomitant]
     Indication: PAIN
  10. MULTIVITAMIN [Concomitant]
  11. ADVIL [Concomitant]
  12. MELOXICAM [Concomitant]

REACTIONS (12)
  - Deep vein thrombosis [None]
  - Iliac vein occlusion [None]
  - Inferior vena caval occlusion [None]
  - Thrombophlebitis [None]
  - Thrombosis [None]
  - Phlebitis [None]
  - Pain in extremity [None]
  - Local swelling [None]
  - Emotional distress [None]
  - Quality of life decreased [None]
  - Abasia [None]
  - Tenderness [None]
